FAERS Safety Report 23260049 (Version 1)
Quarter: 2023Q4

REPORT INFORMATION
  Report Type: Spontaneous
  Country: CN (occurrence: CN)
  Receive Date: 20231204
  Receipt Date: 20231204
  Transmission Date: 20240110
  Serious: Yes (Hospitalization)
  Sender: FDA-Public Use
  Company Number: CN-Eisai-EC-2023-153671

PATIENT
  Age: 55 Year
  Sex: Female
  Weight: 55 kg

DRUGS (4)
  1. LENVIMA [Suspect]
     Active Substance: LENVATINIB
     Indication: Renal cancer
     Dosage: UNKNOWN DOSE
     Route: 048
     Dates: start: 20230926, end: 20231110
  2. LENVIMA [Suspect]
     Active Substance: LENVATINIB
     Indication: Metastases to central nervous system
     Route: 048
     Dates: start: 20231111, end: 20231113
  3. LENVIMA [Suspect]
     Active Substance: LENVATINIB
     Indication: Lung adenocarcinoma
     Route: 048
     Dates: start: 20231114
  4. EVEROLIMUS [Suspect]
     Active Substance: EVEROLIMUS
     Indication: Targeted cancer therapy
     Route: 048
     Dates: start: 20230926, end: 20231113

REACTIONS (2)
  - Bacterial infection [Unknown]
  - Myelosuppression [Recovering/Resolving]

NARRATIVE: CASE EVENT DATE: 20231108
